FAERS Safety Report 16076265 (Version 7)
Quarter: 2022Q4

REPORT INFORMATION
  Report Type: Spontaneous
  Country: US (occurrence: US)
  Receive Date: 20190315
  Receipt Date: 20221206
  Transmission Date: 20230113
  Serious: No
  Sender: FDA-Public Use
  Company Number: US-PFIZER INC-2019024393

PATIENT
  Age: 84 Year
  Sex: Female

DRUGS (3)
  1. PROCARDIA XL [Suspect]
     Active Substance: NIFEDIPINE
     Indication: Hypertension
     Dosage: 60 UG, 1X/DAY (ONE TABLET PER DAY)
  2. PROCARDIA XL [Suspect]
     Active Substance: NIFEDIPINE
     Dosage: 30 MG, DAILY
     Route: 048
  3. PROCARDIA XL [Suspect]
     Active Substance: NIFEDIPINE
     Dosage: 60 MG, EVERY 3 MONTHS (ONE TABLET A DAY EVERY 3 MONTHS)

REACTIONS (2)
  - Product prescribing error [Unknown]
  - Urticaria [Recovered/Resolved]
